FAERS Safety Report 9927106 (Version 1)
Quarter: 2014Q1

REPORT INFORMATION
  Report Type: Spontaneous
  Country: US (occurrence: US)
  Receive Date: 20140226
  Receipt Date: 20140226
  Transmission Date: 20141002
  Serious: No
  Sender: FDA-Public Use
  Company Number: US-AMGEN-USASP2014002801

PATIENT
  Age: 43 Year
  Sex: Female

DRUGS (11)
  1. ENBREL [Suspect]
     Indication: RHEUMATOID ARTHRITIS
     Dosage: 25 MG, 2 TIMES/WK
     Route: 058
     Dates: start: 201111
  2. MOTRIN [Concomitant]
     Dosage: UNK
  3. TOPAMAX [Concomitant]
     Dosage: UNK
  4. PLAQUENIL                          /00072602/ [Concomitant]
     Dosage: UNK
  5. AMBIEN CR [Concomitant]
     Dosage: UNK
  6. LASIX                              /00032601/ [Concomitant]
     Dosage: UNK
  7. TOPROL [Concomitant]
     Dosage: UNK
  8. LEUCOVORIN CALCIUM [Concomitant]
     Dosage: UNK
  9. ASPIRIN [Concomitant]
     Dosage: UNK
  10. METHOTREXATE SODIUM [Concomitant]
     Dosage: UNK
  11. FLUOXETINE HCL [Concomitant]
     Dosage: UNK

REACTIONS (1)
  - Sinusitis [Unknown]
